FAERS Safety Report 13521248 (Version 3)
Quarter: 2017Q2

REPORT INFORMATION
  Report Type: Spontaneous
  Country: US (occurrence: US)
  Receive Date: 20170508
  Receipt Date: 20170526
  Transmission Date: 20170830
  Serious: Yes (Death, Other)
  Sender: FDA-Public Use
  Company Number: US-PFIZER INC-2017188249

PATIENT
  Age: 82 Year
  Sex: Male
  Weight: 201.4 kg

DRUGS (20)
  1. BENZONATATE. [Concomitant]
     Active Substance: BENZONATATE
     Dosage: 100 MG, (FOUR TIMES A DAY PRN)
  2. METHADONE [Concomitant]
     Active Substance: METHADONE HYDROCHLORIDE
     Indication: PAIN
     Dosage: 5 MG, 2X/DAY (EVERY 12 HOURS)
  3. IBRANCE [Suspect]
     Active Substance: PALBOCICLIB
     Indication: LUNG CANCER METASTATIC
     Dosage: 125 MG, CYCLIC (1 CAPSULE 21 DAYS THEN OFF 7 DAYS)
     Route: 048
  4. OMEPRAZOLE. [Concomitant]
     Active Substance: OMEPRAZOLE
     Dosage: 20 MG, 2X/DAY
  5. ONDANSETRON [Concomitant]
     Active Substance: ONDANSETRON
     Indication: VOMITING
  6. ZOMETA [Concomitant]
     Active Substance: ZOLEDRONIC ACID
     Indication: LUNG NEOPLASM MALIGNANT
     Dosage: UNK
  7. ASPIR 81 [Concomitant]
     Dosage: 81 MG, DAILY
  8. ACETAMINOPHEN W/HYDROCODONE [Concomitant]
     Active Substance: ACETAMINOPHEN\HYDROCODONE
     Dosage: UNK UNK, AS NEEDED [HYDROCODONE: 5 MG]/[ACETAMINOPHEN: 325 MG] (EVERY4HRS PRN)
  9. SILDENAFIL. [Concomitant]
     Active Substance: SILDENAFIL
     Dosage: 100 MG, DAILY
  10. FUROSEMIDE. [Concomitant]
     Active Substance: FUROSEMIDE
     Dosage: 40 MG, DAILY (2 TAB DAILY 10 DAYS)
  11. LORATADINE. [Concomitant]
     Active Substance: LORATADINE
     Dosage: 10 MG, DAILY
  12. LACTULOSE. [Concomitant]
     Active Substance: LACTULOSE
     Dosage: UNK UNK, 4X/DAY (2 TABLESPOON FOUR TIMES A DAY 10GRAM/15 ML )
  13. DOCUSATE SODIUM. [Concomitant]
     Active Substance: DOCUSATE SODIUM
     Dosage: 100 MG, 2X/DAY
  14. MAGNESIUM OXIDE. [Concomitant]
     Active Substance: MAGNESIUM OXIDE
     Indication: HYPOMAGNESAEMIA
     Dosage: 400 MG, 2X/DAY
  15. TAMSULOSIN [Concomitant]
     Active Substance: TAMSULOSIN
     Dosage: 0.4 MG, DAILY
  16. ROBITUSSIN PEAK COLD COUGH+CHEST CONGESTION D [Concomitant]
     Dosage: 5 ML, 3X/DAY [DEXTROMETHORPHAN HYDROBROMIDE 10 MG, GUAIFENESIN 100 MG]
  17. SENNA LAXATIVE [Concomitant]
     Active Substance: SENNOSIDES
     Dosage: 2 DF, 2X/DAY
  18. POTASSIUM CHLORIDE. [Concomitant]
     Active Substance: POTASSIUM CHLORIDE
     Dosage: 10 MEQ, 2X/DAY
  19. VITAMIN D3 [Concomitant]
     Active Substance: CHOLECALCIFEROL
     Dosage: 2000 IU, DAILY
  20. ONDANSETRON [Concomitant]
     Active Substance: ONDANSETRON
     Indication: NAUSEA
     Dosage: 8 MG, 2X/DAY (EVERY 12 HOURS)

REACTIONS (4)
  - Product use issue [Unknown]
  - Death [Fatal]
  - Product use in unapproved indication [Unknown]
  - Cytopenia [Unknown]
